FAERS Safety Report 18520530 (Version 2)
Quarter: 2021Q2

REPORT INFORMATION
  Report Type: Report from Study
  Country: BR (occurrence: BR)
  Receive Date: 20201118
  Receipt Date: 20210504
  Transmission Date: 20210717
  Serious: Yes (Other)
  Sender: FDA-Public Use
  Company Number: BR-JNJFOC-20200924900

PATIENT
  Sex: Female
  Weight: 58 kg

DRUGS (5)
  1. REMICADE [Suspect]
     Active Substance: INFLIXIMAB
     Indication: COLITIS ULCERATIVE
     Route: 042
     Dates: start: 20200403
  2. REMICADE [Suspect]
     Active Substance: INFLIXIMAB
     Indication: COLITIS
  3. INFLIXIMAB, RECOMBINANT [Suspect]
     Active Substance: INFLIXIMAB
     Indication: COLITIS
  4. MESACOL                            /00747601/ [Concomitant]
     Active Substance: MESALAMINE
  5. INFLIXIMAB, RECOMBINANT [Suspect]
     Active Substance: INFLIXIMAB
     Indication: COLITIS ULCERATIVE
     Route: 042
     Dates: start: 20200424, end: 20200605

REACTIONS (5)
  - Diplopia [Unknown]
  - Hyperthyroidism [Unknown]
  - Psoriasis [Recovering/Resolving]
  - Blindness [Unknown]
  - Eye infection [Recovered/Resolved]

NARRATIVE: CASE EVENT DATE: 2020
